FAERS Safety Report 8905422 (Version 2)
Quarter: 2012Q4

REPORT INFORMATION
  Report Type: 
  Country: FR (occurrence: FR)
  Receive Date: 20121111
  Receipt Date: 20121128
  Transmission Date: 20130627
  Serious: Yes (Hospitalization)
  Sender: FDA-Public Use
  Company Number: PHHY2012FR103538

PATIENT
  Age: 70 Year
  Sex: Male

DRUGS (5)
  1. ZOMETA [Suspect]
     Indication: METASTASES TO BONE
     Dosage: UNK UKN, UNK
     Dates: start: 20120510, end: 20120510
  2. METFORMIN [Suspect]
     Indication: DIABETES MELLITUS
     Dosage: 850 mg, TID
  3. LOGIMAX [Concomitant]
     Dosage: UNK UKN, UNK
  4. CRESTOR [Concomitant]
     Dosage: UNK UKN, UNK
  5. ALLOPURINOL [Concomitant]
     Dosage: UNK UKN, UNK

REACTIONS (3)
  - Lactic acidosis [Recovered/Resolved]
  - Pancreatitis acute [Recovered/Resolved]
  - Renal failure acute [Recovered/Resolved]
